FAERS Safety Report 8244670-9 (Version None)
Quarter: 2012Q1

REPORT INFORMATION
  Report Type: 
  Country: None (occurrence: None)
  Receive Date: 20120329
  Receipt Date: 20120319
  Transmission Date: 20120608
  Serious: No
  Sender: FDA-Public Use
  Company Number: US-MYLANLABS-2012S1000532

PATIENT
  Age: 57 Year
  Sex: Female
  Weight: 81.65 kg

DRUGS (45)
  1. FENTANYL-100 [Suspect]
     Indication: BACK PAIN
     Dosage: Q72H
     Route: 062
     Dates: end: 20111201
  2. FENTANYL-100 [Suspect]
     Indication: FIBROMYALGIA
     Dosage: Q72H
     Route: 062
     Dates: end: 20111201
  3. FENTANYL-100 [Suspect]
     Dosage: Q72H
     Route: 062
     Dates: start: 20111201
  4. FISH OIL [Concomitant]
  5. REPLENEX [Concomitant]
  6. FENTANYL-100 [Suspect]
     Dosage: Q72H
     Route: 062
     Dates: end: 20111201
  7. FENTANYL-100 [Suspect]
     Dosage: Q72H
     Route: 062
     Dates: start: 20111201
  8. FENTANYL-100 [Suspect]
     Dosage: Q72H
     Route: 062
     Dates: start: 20111201
  9. FENTANYL-100 [Suspect]
     Dosage: Q72H
     Route: 062
     Dates: start: 20111201
  10. DIOVAN HCT [Concomitant]
  11. SULINDAC [Concomitant]
  12. ZOFRAN [Concomitant]
  13. PROMETHAZINE [Concomitant]
  14. FENTANYL-100 [Suspect]
     Dosage: Q72H
     Route: 062
     Dates: start: 20111201
  15. FENTANYL-100 [Suspect]
     Dosage: Q72H
     Route: 062
     Dates: start: 20111201
  16. LEVOXYL [Concomitant]
  17. ZEGERID [Concomitant]
     Dosage: 40MG TO 1100MG
  18. AMITIZA [Concomitant]
  19. CALCIUM CARBONATE [Concomitant]
  20. FENTANYL-100 [Suspect]
     Dosage: Q72H
     Route: 062
     Dates: end: 20111201
  21. FENTANYL-100 [Suspect]
     Dosage: Q72H
     Route: 062
     Dates: end: 20111201
  22. FENTANYL-100 [Suspect]
     Dosage: Q72H
     Route: 062
     Dates: start: 20111201
  23. FENTANYL-100 [Suspect]
     Dosage: Q72H
     Route: 062
     Dates: start: 20111201
  24. ALBUTEROL [Concomitant]
  25. NORCO [Concomitant]
  26. MAGNESIUM [Concomitant]
  27. FENTANYL-100 [Suspect]
     Dosage: Q72H
     Route: 062
     Dates: start: 20111201
  28. WELLBUTRIN XL [Concomitant]
  29. PROVIGIL [Concomitant]
  30. ADVAIR DISKUS 100/50 [Concomitant]
     Dosage: 250/50 2 PUFFS BID
  31. CLORAZEPATE DIPOTASSIUM [Concomitant]
  32. MULTI-VITAMIN [Concomitant]
  33. FENTANYL-100 [Suspect]
     Indication: PAIN IN EXTREMITY
     Dosage: Q72H
     Route: 062
     Dates: end: 20111201
  34. FENTANYL-100 [Suspect]
     Dosage: Q72H
     Route: 062
     Dates: start: 20111201
  35. SIMVASTATIN [Concomitant]
  36. POTASSIUM CHLORIDE [Concomitant]
  37. FLORIFY [Concomitant]
  38. HYDROCHLOROTHIAZIDE [Concomitant]
  39. POLY-IRON [Concomitant]
  40. FENTANYL-100 [Suspect]
     Dosage: Q72H
     Route: 062
     Dates: start: 20111201
  41. FENTANYL-100 [Suspect]
     Dosage: Q72H
     Route: 062
     Dates: start: 20111201
  42. OMNARIS [Concomitant]
     Dosage: 2 PUFFS EACH NOSTRIL
     Route: 045
  43. ROPINIROLE [Concomitant]
  44. PROZAC [Concomitant]
  45. OPTIVAR [Concomitant]

REACTIONS (6)
  - DRUG WITHDRAWAL SYNDROME [None]
  - DRUG EFFECT DECREASED [None]
  - PAIN IN EXTREMITY [None]
  - HYPERHIDROSIS [None]
  - BACK PAIN [None]
  - HOT FLUSH [None]
